FAERS Safety Report 17880416 (Version 4)
Quarter: 2022Q3

REPORT INFORMATION
  Report Type: Report from Study
  Country: US (occurrence: US)
  Receive Date: 20200610
  Receipt Date: 20220915
  Transmission Date: 20221027
  Serious: Yes (Other)
  Sender: FDA-Public Use
  Company Number: NVSC2020US161575

PATIENT
  Sex: Male

DRUGS (2)
  1. GLEEVEC [Suspect]
     Active Substance: IMATINIB MESYLATE
     Indication: Connective tissue neoplasm
     Dosage: 400 MG, QD
     Route: 048
  2. GLEEVEC [Suspect]
     Active Substance: IMATINIB MESYLATE
     Indication: Soft tissue neoplasm

REACTIONS (10)
  - Neoplasm progression [Unknown]
  - Gait disturbance [Unknown]
  - Cognitive disorder [Unknown]
  - Visual impairment [Unknown]
  - Pain in extremity [Unknown]
  - Epistaxis [Unknown]
  - Fluid retention [Unknown]
  - Memory impairment [Unknown]
  - Abdominal distension [Unknown]
  - Product dose omission issue [Unknown]
